FAERS Safety Report 11022061 (Version 3)
Quarter: 2015Q3

REPORT INFORMATION
  Report Type: Report from Study
  Country: BR (occurrence: BR)
  Receive Date: 20150413
  Receipt Date: 20150825
  Transmission Date: 20151125
  Serious: Yes (Death, Other)
  Sender: FDA-Public Use
  Company Number: PHHY2015BR042403

PATIENT
  Age: 76 Year
  Sex: Female
  Weight: 63 kg

DRUGS (17)
  1. EXELON PATCH [Suspect]
     Active Substance: RIVASTIGMINE
     Dosage: PATCH 10 (CM2) (AFTER 1 MONTH APPROXIMATELY)
     Route: 062
  2. TENORETIC [Concomitant]
     Active Substance: ATENOLOL\CHLORTHALIDONE
     Indication: HYPERTENSION
     Dosage: 1 TABLET NIGHT (20 YEARS AGO APPROXIMATELY) QD
     Route: 065
     Dates: end: 20150330
  3. EXELON [Suspect]
     Active Substance: RIVASTIGMINE TARTRATE
     Indication: DEMENTIA ALZHEIMER^S TYPE
     Dosage: 6 MG ( 1 CAPSULE MORNING AND NIGHT)
     Route: 065
  4. EXELON [Suspect]
     Active Substance: RIVASTIGMINE TARTRATE
     Dosage: 1 DF (6.0 MG)
     Route: 048
     Dates: start: 201410, end: 20150330
  5. EXELON PATCH [Suspect]
     Active Substance: RIVASTIGMINE
     Dosage: PATCH 20 (CM2), QD
     Route: 062
     Dates: start: 201408, end: 201409
  6. EXELON PATCH [Suspect]
     Active Substance: RIVASTIGMINE
     Dosage: PATCH 5 (CM2), QD
     Route: 062
     Dates: start: 201407, end: 201408
  7. ADALAT [Concomitant]
     Active Substance: NIFEDIPINE
     Indication: HYPERTENSION
     Dosage: 60 MG (1 TABLET MORNING), QD (20 YEARS AGO)
     Route: 048
     Dates: end: 20150330
  8. EXELON PATCH [Suspect]
     Active Substance: RIVASTIGMINE
     Dosage: PATCH 10 (CM2), QD
     Route: 062
     Dates: start: 201408, end: 201408
  9. EXELON [Suspect]
     Active Substance: RIVASTIGMINE TARTRATE
     Dosage: 6 MG (1 CAPSULE NIGHT)
     Route: 065
  10. EXELON [Suspect]
     Active Substance: RIVASTIGMINE TARTRATE
     Dosage: 6 MG (1 CAPSULE MORNING AND NIGHT)
     Route: 065
  11. EXELON [Suspect]
     Active Substance: RIVASTIGMINE TARTRATE
     Dosage: 9 MG (6.0 MG IN MORNING AND 3.0 MG IN NIGHT),
     Route: 065
  12. EXELON PATCH [Suspect]
     Active Substance: RIVASTIGMINE
     Indication: DEMENTIA ALZHEIMER^S TYPE
     Dosage: PATCH 20 (CM2), QHS (AFTER 2 MONTHS AND 20 DAYS OF USE)
     Route: 062
  13. EXELON PATCH [Suspect]
     Active Substance: RIVASTIGMINE
     Dosage: PATCH 5 (CM2) QHS (AFTER 10 DAYS OF USE)
     Route: 062
  14. EXELON [Suspect]
     Active Substance: RIVASTIGMINE TARTRATE
     Dosage: 3 MG (1 CAPSULE MORNING AND NIGHT)
     Route: 065
  15. EXELON [Suspect]
     Active Substance: RIVASTIGMINE TARTRATE
     Dosage: 3 MG (1 CAPSULE MORNING)
     Route: 065
  16. EXELON [Suspect]
     Active Substance: RIVASTIGMINE TARTRATE
     Dosage: 1 DF, (3.0 - CAPSULE)
     Route: 048
     Dates: start: 201409, end: 201410
  17. EPEZ [Concomitant]
     Active Substance: DONEPEZIL HYDROCHLORIDE
     Indication: DEMENTIA ALZHEIMER^S TYPE
     Dosage: 1 DF, QD (10 MG) (3 MONTHS AGO)
     Route: 048
     Dates: end: 20150330

REACTIONS (9)
  - Arrhythmia [Fatal]
  - Transient ischaemic attack [Recovering/Resolving]
  - Myocardial infarction [Fatal]
  - Loss of consciousness [Recovering/Resolving]
  - Malaise [Unknown]
  - Application site hypersensitivity [Recovered/Resolved]
  - Hyperhidrosis [Not Recovered/Not Resolved]
  - Sensory disturbance [Not Recovered/Not Resolved]
  - Hypersensitivity [Unknown]

NARRATIVE: CASE EVENT DATE: 201408
